FAERS Safety Report 6526055-6 (Version None)
Quarter: 2009Q4

REPORT INFORMATION
  Report Type: 
  Country: None (occurrence: None)
  Receive Date: 20091224
  Receipt Date: 20091216
  Transmission Date: 20100525
  Serious: Yes (Hospitalization)
  Sender: FDA-Public Use
  Company Number: 2009003891

PATIENT
  Age: 73 Year
  Sex: Male

DRUGS (2)
  1. ERLOTINIB HYDROCHLORIDE [Suspect]
     Indication: PANCREATIC CARCINOMA METASTATIC
     Dosage: (100 MG), ORAL
     Route: 048
     Dates: start: 20091123, end: 20091211
  2. GEMCITABINE [Suspect]
     Indication: PANCREATIC CARCINOMA METASTATIC
     Dosage: (1610 MG, 1X PER 1 WEEK), INTRAVENOUS
     Route: 042
     Dates: start: 20091123

REACTIONS (4)
  - BACTERIAL TEST POSITIVE [None]
  - DIARRHOEA [None]
  - HYPOCALCAEMIA [None]
  - URINARY TRACT INFECTION [None]
